FAERS Safety Report 6427327-6 (Version None)
Quarter: 2009Q4

REPORT INFORMATION
  Report Type: 
  Country: None (occurrence: None)
  Receive Date: 20091104
  Receipt Date: 20091023
  Transmission Date: 20100525
  Serious: Yes (Other)
  Sender: FDA-Public Use
  Company Number: US-ELI_LILLY_AND_COMPANY-US200910005943

PATIENT
  Age: 47 Year
  Sex: Male

DRUGS (1)
  1. ADCIRCA [Suspect]
     Dates: start: 20091015

REACTIONS (1)
  - NEUTROPHIL COUNT DECREASED [None]
